FAERS Safety Report 23466922 (Version 1)
Quarter: 2024Q1

REPORT INFORMATION
  Report Type: Other
  Country: GB (occurrence: GB)
  Receive Date: 20240201
  Receipt Date: 20240201
  Transmission Date: 20240410
  Serious: Yes (Other)
  Sender: FDA-Public Use
  Company Number: GB-GLENMARK PHARMACEUTICALS-2024GMK088613

PATIENT

DRUGS (12)
  1. EZETIMIBE [Suspect]
     Active Substance: EZETIMIBE
     Indication: Ill-defined disorder
     Dosage: UNK
     Route: 065
     Dates: start: 20240118
  2. ASPIRIN [Concomitant]
     Active Substance: ASPIRIN
     Indication: Ill-defined disorder
     Dosage: TAKE ONE DAILY
     Route: 065
     Dates: start: 20230629
  3. BISOPROLOL [Concomitant]
     Active Substance: BISOPROLOL\BISOPROLOL FUMARATE
     Indication: Ill-defined disorder
     Dosage: UNK, OD, TAKE ONE DAILY (SANDOZ BRAND)
     Route: 065
     Dates: start: 20230629
  4. EZETIMIBE [Concomitant]
     Active Substance: EZETIMIBE
     Indication: Ill-defined disorder
     Dosage: TAKE ONE DAILY
     Route: 065
     Dates: start: 20230905
  5. FLUOROURACIL [Concomitant]
     Active Substance: FLUOROURACIL
     Indication: Ill-defined disorder
     Dosage: UNK, BID, APPLY THINLY TWICE DAILY FOR 3 WEEKS AS PER A...
     Route: 065
     Dates: start: 20240111
  6. LANSOPRAZOLE [Concomitant]
     Active Substance: LANSOPRAZOLE
     Indication: Ill-defined disorder
     Dosage: 1 DOSAGE FORM, OD, (ONE TO BE TAKEN ONCE A DAY)
     Route: 065
     Dates: start: 20230629
  7. PRALUENT [Concomitant]
     Active Substance: ALIROCUMAB
     Indication: Ill-defined disorder
     Dosage: 150 MILLIGRAM, (150MG SUBCUTANEOUSLY EVERY TWO WEEKS)
     Route: 058
     Dates: start: 20230728
  8. RAMIPRIL [Concomitant]
     Active Substance: RAMIPRIL
     Indication: Ill-defined disorder
     Dosage: 1 DAILY
     Route: 065
     Dates: start: 20230629
  9. ALBUTEROL SULFATE [Concomitant]
     Active Substance: ALBUTEROL SULFATE
     Indication: Ill-defined disorder
     Dosage: 2 DOSAGE FORM, PRN, (INHALE 2 DOSES AS NEEDED. IF YOU NEED TO USE TH...)
     Dates: start: 20230629
  10. SERETIDE [Concomitant]
     Active Substance: FLUTICASONE PROPIONATE\SALMETEROL XINAFOATE
     Indication: Ill-defined disorder
     Dosage: 1 DOSAGE FORM, BID, INHALE 1 DOSE TWICE DAILY
     Dates: start: 20230629
  11. SPIRONOLACTONE [Concomitant]
     Active Substance: SPIRONOLACTONE
     Indication: Ill-defined disorder
     Dosage: 1 DOSAGE FORM, QD, (ONE TO BE TAKEN DAILY)
     Route: 065
     Dates: start: 20230629
  12. THEICAL-D3 [Concomitant]
     Indication: Ill-defined disorder
     Dosage: 1 DOSAGE FORM, OD, (TAKE ONE ONCE DAILY)
     Route: 065
     Dates: start: 20230629

REACTIONS (3)
  - Adverse drug reaction [Recovering/Resolving]
  - Lip swelling [Recovering/Resolving]
  - Hypersensitivity [Recovering/Resolving]

NARRATIVE: CASE EVENT DATE: 20240118
